FAERS Safety Report 8133782-6 (Version None)
Quarter: 2012Q1

REPORT INFORMATION
  Report Type: 
  Country: None (occurrence: None)
  Receive Date: 20120213
  Receipt Date: 20120213
  Transmission Date: 20120608
  Serious: No
  Sender: FDA-Public Use
  Company Number: None

PATIENT
  Age: 54 Year
  Sex: Female
  Weight: 86.182 kg

DRUGS (1)
  1. SODIUM BICARBONATE [Suspect]
     Indication: DYSPEPSIA
     Dosage: 2 TABLETS
     Dates: start: 20120208, end: 20120210

REACTIONS (4)
  - DYSPEPSIA [None]
  - ABDOMINAL PAIN UPPER [None]
  - PRODUCT QUALITY ISSUE [None]
  - NAUSEA [None]
